FAERS Safety Report 5968657-1 (Version None)
Quarter: 2008Q4

REPORT INFORMATION
  Report Type: 
  Country: None (occurrence: None)
  Receive Date: 20081126
  Receipt Date: 20081124
  Transmission Date: 20090506
  Serious: Yes (Hospitalization, Other)
  Sender: FDA-Public Use
  Company Number: US-ELI_LILLY_AND_COMPANY-US200811005416

PATIENT
  Sex: Female

DRUGS (1)
  1. FORTEO [Suspect]
     Dosage: UNK, UNK
     Dates: start: 20080801, end: 20081116

REACTIONS (5)
  - ANXIETY [None]
  - EPISTAXIS [None]
  - MALAISE [None]
  - MUSCLE SPASMS [None]
  - PAIN IN EXTREMITY [None]
